FAERS Safety Report 9982728 (Version 2)
Quarter: 2015Q1

REPORT INFORMATION
  Report Type: Spontaneous
  Country: US (occurrence: None)
  Receive Date: 20140128
  Receipt Date: 20150126
  Transmission Date: 20150721
  Serious: Yes (Hospitalization)
  Sender: FDA-Public Use
  Company Number: A-NJ2013-84969

PATIENT
  Age: 64 Year
  Sex: Female

DRUGS (5)
  1. TRACLEER [Suspect]
     Active Substance: BOSENTAN\BOSENTAN MONOHYDRATE
     Indication: SYSTEMIC SCLEROSIS
     Route: 048
  2. PLAVIX (CLOPIDOGREL BUSULFATE) [Concomitant]
  3. SILDENAFIL (SILDENAFIL) ) [Concomitant]
  4. LETAIRIS [Concomitant]
     Active Substance: AMBRISENTAN
  5. TYVASO [Concomitant]
     Active Substance: TREPROSTINIL

REACTIONS (5)
  - Transfusion [None]
  - Anaemia [None]
  - Mineral supplementation [None]
  - Haemoglobin decreased [None]
  - Dizziness [None]

NARRATIVE: CASE EVENT DATE: 20130619
